FAERS Safety Report 15390051 (Version 7)
Quarter: 2018Q4

REPORT INFORMATION
  Report Type: Report from Study
  Country: CA (occurrence: CA)
  Receive Date: 20180917
  Receipt Date: 20181205
  Transmission Date: 20190204
  Serious: Yes (Hospitalization)
  Sender: FDA-Public Use
  Company Number: CA-ROCHE-2183262

PATIENT
  Age: 55 Year
  Sex: Female
  Weight: 62.9 kg

DRUGS (3)
  1. TYLENOL [Concomitant]
     Active Substance: ACETAMINOPHEN
     Dosage: TYLENOL XS
     Route: 065
  2. RO 6870810 (BET INHIBITOR) [Suspect]
     Active Substance: RO-6870810
     Indication: OVARIAN CANCER
     Dosage: DATE OF MOST RECENT DOSE OF RO6870810 PRIOR TO AE ONSET ON 24/AUG/2018 0.45 MG/KG (11:07)?DATE OF MO
     Route: 058
     Dates: start: 20180824
  3. ATEZOLIZUMAB. [Suspect]
     Active Substance: ATEZOLIZUMAB
     Indication: OVARIAN CANCER
     Dosage: DATE OF MOST RECENT DOSE OF ATEZOLIZUMAB PRIOR TO AE ONSET 24/AUG/2018 1200 MG (AT 12:15)
     Route: 042
     Dates: start: 20180824

REACTIONS (2)
  - Platelet count decreased [Recovered/Resolved]
  - Fatigue [Recovering/Resolving]

NARRATIVE: CASE EVENT DATE: 20180828
